FAERS Safety Report 7881717-3 (Version None)
Quarter: 2011Q4

REPORT INFORMATION
  Report Type: 
  Country: None (occurrence: None)
  Receive Date: 20111101
  Receipt Date: 20110526
  Transmission Date: 20120403
  Serious: No
  Sender: FDA-Public Use
  Company Number: US-AMGEN-USASP2011027484

PATIENT
  Sex: Male

DRUGS (5)
  1. CADUET [Concomitant]
  2. METOPROLOL TARTRATE [Concomitant]
     Dosage: 25 MG, UNK
  3. ENBREL [Suspect]
     Indication: PRODUCT USED FOR UNKNOWN INDICATION
     Dosage: 50 MG, QWK
     Route: 058
     Dates: start: 20100101
  4. WARFARIN [Concomitant]
     Dosage: 1 MG, UNK
  5. ZOCOR [Concomitant]
     Dosage: 5 MG, UNK

REACTIONS (2)
  - INJECTION SITE PAIN [None]
  - INJECTION SITE INFLAMMATION [None]
